FAERS Safety Report 12967381 (Version 2)
Quarter: 2016Q4

REPORT INFORMATION
  Report Type: Report from Study
  Country: None (occurrence: AU)
  Receive Date: 20161123
  Receipt Date: 20161203
  Transmission Date: 20170207
  Serious: Yes (Death, Hospitalization)
  Sender: FDA-Public Use
  Company Number: AU-ABBVIE-16K-008-1789200-00

PATIENT
  Sex: Male

DRUGS (1)
  1. DUODOPA [Suspect]
     Active Substance: CARBIDOPA\LEVODOPA
     Indication: PARKINSON^S DISEASE
     Dosage: 16 HOUR THERAPY PEG-J
     Route: 050
     Dates: start: 20160511, end: 20161120

REACTIONS (2)
  - Cardiac disorder [Fatal]
  - Chest pain [Unknown]

NARRATIVE: CASE EVENT DATE: 2016
